FAERS Safety Report 25645925 (Version 7)
Quarter: 2025Q3

REPORT INFORMATION
  Report Type: Spontaneous
  Country: JP (occurrence: JP)
  Receive Date: 20250805
  Receipt Date: 20250924
  Transmission Date: 20251020
  Serious: Yes (Hospitalization, Other)
  Sender: JOHNSON AND JOHNSON
  Company Number: JP-JNJFOC-20250800366

PATIENT
  Age: 0 Year
  Sex: Male
  Weight: 6.0 kg

DRUGS (7)
  1. OPSUMIT [Suspect]
     Active Substance: MACITENTAN
     Indication: Pulmonary arterial hypertension
     Dosage: DOSE UNKNOWN
     Route: 048
     Dates: start: 20240524, end: 20240526
  2. OPSUMIT [Suspect]
     Active Substance: MACITENTAN
     Dates: start: 20240527, end: 20240909
  3. OPSUMIT [Suspect]
     Active Substance: MACITENTAN
     Dates: start: 20240524, end: 20240526
  4. UPTRAVI [Suspect]
     Active Substance: SELEXIPAG
     Indication: Pulmonary arterial hypertension
     Dosage: DOSE UNKNOWN
     Route: 048
     Dates: start: 20240720, end: 20241010
  5. SPIRONOLACTONE [Concomitant]
     Active Substance: SPIRONOLACTONE
     Indication: Cardiac failure
     Dosage: PER ORAL
     Route: 048
     Dates: start: 20231020
  6. FUROSEMIDE [Concomitant]
     Active Substance: FUROSEMIDE
     Indication: Cardiac failure
     Dosage: PER ORAL MEDICINE
     Route: 048
     Dates: start: 20231020
  7. SILDENAFIL CITRATE [Concomitant]
     Active Substance: SILDENAFIL CITRATE
     Indication: Pulmonary arterial hypertension
     Dosage: PERORAL
     Route: 065
     Dates: start: 20240524

REACTIONS (3)
  - Liver disorder [Recovering/Resolving]
  - Bacteraemia [Recovered/Resolved]
  - Off label use [Unknown]

NARRATIVE: CASE EVENT DATE: 20240524
